FAERS Safety Report 10072067 (Version 2)
Quarter: 2014Q2

REPORT INFORMATION
  Report Type: Report from Study
  Country: JP (occurrence: JP)
  Receive Date: 20140411
  Receipt Date: 20140513
  Transmission Date: 20141212
  Serious: Yes (Death)
  Sender: FDA-Public Use
  Company Number: JP-ROCHE-1378327

PATIENT
  Age: 84 Year
  Sex: Female

DRUGS (12)
  1. METHOXY POLYETHYLENE GLYCOL-EPOETIN BETA [Suspect]
     Indication: NEPHROGENIC ANAEMIA
     Route: 042
     Dates: start: 20130729, end: 20130904
  2. BLOPRESS [Concomitant]
     Route: 048
     Dates: end: 20130803
  3. PURSENNID [Concomitant]
     Route: 048
  4. AMLODIN [Concomitant]
     Route: 048
     Dates: end: 20130803
  5. LIPITOR [Concomitant]
     Route: 048
  6. ALOSITOL [Concomitant]
     Route: 048
  7. CARDENALIN [Concomitant]
     Route: 048
     Dates: end: 20130803
  8. DIART [Concomitant]
     Route: 048
  9. KAYEXALATE [Concomitant]
     Route: 048
     Dates: end: 20130904
  10. KAYEXALATE [Concomitant]
     Route: 048
     Dates: start: 20130905, end: 20131002
  11. AMLODIN [Concomitant]
     Route: 048
     Dates: start: 20130904
  12. FEBURIC [Concomitant]
     Route: 048
     Dates: start: 20130904

REACTIONS (2)
  - Adult T-cell lymphoma/leukaemia [Fatal]
  - Multi-organ failure [Fatal]
